FAERS Safety Report 7539737-4 (Version None)
Quarter: 2011Q2

REPORT INFORMATION
  Report Type: 
  Country: None (occurrence: None)
  Receive Date: 20110610
  Receipt Date: 20110601
  Transmission Date: 20111010
  Serious: Yes (Other)
  Sender: FDA-Public Use
  Company Number: US-MYLANLABS-2011S1011415

PATIENT
  Age: 68 Year
  Sex: Female
  Weight: 77.11 kg

DRUGS (6)
  1. CRESTOR [Concomitant]
     Route: 048
  2. FENTANYL-100 [Suspect]
     Indication: NECK PAIN
     Dosage: Q72H
     Route: 062
     Dates: start: 20110517, end: 20110530
  3. ATENOLOL [Concomitant]
     Route: 048
  4. PLAVIX [Concomitant]
     Route: 048
  5. FENTANYL-100 [Suspect]
     Indication: BACK PAIN
     Dosage: Q72H
     Route: 062
     Dates: start: 20110517, end: 20110530
  6. SYNTHROID [Concomitant]
     Route: 048

REACTIONS (3)
  - NIGHTMARE [None]
  - DYSPNOEA [None]
  - PRURITUS [None]
